FAERS Safety Report 6227888-6 (Version None)
Quarter: 2009Q2

REPORT INFORMATION
  Report Type: 
  Country: None (occurrence: None)
  Receive Date: 20090612
  Receipt Date: 20090602
  Transmission Date: 20091009
  Serious: Yes (Death, Hospitalization)
  Sender: FDA-Public Use
  Company Number: B0498956A

PATIENT
  Sex: Male

DRUGS (3)
  1. REQUIP [Suspect]
     Indication: PARKINSON'S DISEASE
     Dosage: 15MG PER DAY
     Route: 048
     Dates: start: 20050101
  2. MODOPAR [Suspect]
     Indication: PARKINSON'S DISEASE
     Dosage: 3CAP PER DAY
     Route: 048
  3. SINEMET [Suspect]
     Indication: PARKINSON'S DISEASE
     Dosage: 300MG PER DAY
     Route: 048

REACTIONS (6)
  - CEREBROVASCULAR ACCIDENT [None]
  - COMPLETED SUICIDE [None]
  - CONFUSIONAL STATE [None]
  - DEPRESSION [None]
  - PATHOLOGICAL GAMBLING [None]
  - SUICIDE ATTEMPT [None]
